FAERS Safety Report 8140085 (Version 4)
Quarter: 2013Q3

REPORT INFORMATION
  Report Type: Report from Study
  Country: US (occurrence: US)
  Receive Date: 20110916
  Receipt Date: 20130829
  Transmission Date: 20140515
  Serious: Yes (Other)
  Sender: FDA-Public Use
  Company Number: US-UCBSA-041015

PATIENT
  Age: 65 Year
  Sex: Female
  Weight: 56.7 kg

DRUGS (8)
  1. CIMZIA [Suspect]
     Indication: CROHN^S DISEASE
     Dosage: PREVIOUS DOSE: ON 03-MAR-2011 400 MG EVERY 2 WEEKS
     Route: 058
     Dates: start: 20110421
  2. SIMVASTATIN [Concomitant]
     Indication: BLOOD CHOLESTEROL
     Dosage: 20 MG
     Route: 048
  3. VITAMIN C [Concomitant]
  4. NAPROXEN [Concomitant]
  5. ACETAMINOPHEN [Concomitant]
  6. URISODIOL [Concomitant]
     Indication: CHOLANGITIS SCLEROSING
     Route: 048
  7. ESTRACE VAG [Concomitant]
     Dosage: 0.1 MG
  8. CLOBETASOL [Concomitant]
     Dosage: .05%

REACTIONS (1)
  - Lichen sclerosus [Not Recovered/Not Resolved]
